FAERS Safety Report 18035675 (Version 1)
Quarter: 2020Q3

REPORT INFORMATION
  Report Type: Spontaneous
  Country: CN (occurrence: CN)
  Receive Date: 20200717
  Receipt Date: 20200717
  Transmission Date: 20201103
  Serious: Yes (Other)
  Sender: FDA-Public Use
  Company Number: CN-LUPIN PHARMACEUTICALS INC.-2020-03439

PATIENT
  Age: 48 Year
  Sex: Male

DRUGS (1)
  1. DECITABINE INJECTION [Suspect]
     Active Substance: DECITABINE
     Indication: ACUTE MYELOID LEUKAEMIA
     Dosage: 20 MILLIGRAM/SQ. METER, QD (FOR 5 CONSECUTIVE DAYS EVERY 3 MONTHS)
     Route: 042

REACTIONS (1)
  - Herpes zoster [Unknown]
